FAERS Safety Report 13818524 (Version 3)
Quarter: 2017Q3

REPORT INFORMATION
  Report Type: Spontaneous
  Country: AR (occurrence: AR)
  Receive Date: 20170801
  Receipt Date: 20170917
  Transmission Date: 20171127
  Serious: Yes (Other)
  Sender: FDA-Public Use
  Company Number: PHHY2017AR111085

PATIENT
  Age: 67 Year

DRUGS (1)
  1. SIMULECT [Suspect]
     Active Substance: BASILIXIMAB
     Indication: RENAL TRANSPLANT
     Dosage: 20 MG, UNK
     Route: 042

REACTIONS (5)
  - Tremor [Unknown]
  - Pyrexia [Unknown]
  - Anaphylactic reaction [Unknown]
  - Rash [Unknown]
  - Hypotension [Unknown]

NARRATIVE: CASE EVENT DATE: 20170722
